FAERS Safety Report 15659487 (Version 1)
Quarter: 2018Q4

REPORT INFORMATION
  Report Type: Report from Study
  Country: US (occurrence: US)
  Receive Date: 20181127
  Receipt Date: 20181127
  Transmission Date: 20190205
  Serious: Yes (Other)
  Sender: FDA-Public Use
  Company Number: US-ROCHE-2193216

PATIENT
  Sex: Female
  Weight: 63.56 kg

DRUGS (2)
  1. SHINGRIX [Concomitant]
     Active Substance: RECOMBINANT VARICELLA ZOSTER VIRUS (VZV) GLYCOPROTEIN E
     Indication: HERPES ZOSTER
     Route: 030
  2. OCREVUS [Suspect]
     Active Substance: OCRELIZUMAB
     Indication: RELAPSING MULTIPLE SCLEROSIS
     Route: 042
     Dates: start: 201806

REACTIONS (5)
  - Urinary tract infection [Not Recovered/Not Resolved]
  - Tendon disorder [Not Recovered/Not Resolved]
  - Immunosuppression [Unknown]
  - B-lymphocyte count decreased [Unknown]
  - Patella fracture [Not Recovered/Not Resolved]
